FAERS Safety Report 8110787-2 (Version None)
Quarter: 2012Q1

REPORT INFORMATION
  Report Type: 
  Country: None (occurrence: None)
  Receive Date: 20120203
  Receipt Date: 20120126
  Transmission Date: 20120608
  Serious: Yes (Hospitalization, Other)
  Sender: FDA-Public Use
  Company Number: US-BAYER-2011-075065

PATIENT
  Age: 48 Year
  Sex: Female

DRUGS (3)
  1. YAZ [Suspect]
     Indication: MENSTRUATION IRREGULAR
     Dosage: UNK
     Dates: start: 20060101, end: 20080101
  2. YAZ [Suspect]
     Indication: PREMENSTRUAL SYNDROME
  3. YAZ [Suspect]

REACTIONS (4)
  - PAIN [None]
  - BILIARY DYSKINESIA [None]
  - GALLBLADDER INJURY [None]
  - INJURY [None]
